FAERS Safety Report 9651899 (Version 1)
Quarter: 2013Q4

REPORT INFORMATION
  Report Type: Spontaneous
  Country: US (occurrence: US)
  Receive Date: 20131029
  Receipt Date: 20131029
  Transmission Date: 20140711
  Serious: No
  Sender: FDA-Public Use
  Company Number: US-ENDO PHARMACEUTICALS INC.-LACT20120008

PATIENT
  Age: 68 Year
  Sex: Female

DRUGS (2)
  1. LACTULOSE ORAL SOLUTION [Suspect]
     Indication: CONSTIPATION
     Dosage: UNKNOWN
     Route: 048
     Dates: start: 201208
  2. AMITIZA [Concomitant]
     Indication: PRODUCT USED FOR UNKNOWN INDICATION
     Dosage: UNKNOWN
     Route: 065

REACTIONS (2)
  - Blood glucose increased [Unknown]
  - Nausea [Recovered/Resolved]
